FAERS Safety Report 6786213-2 (Version None)
Quarter: 2010Q2

REPORT INFORMATION
  Report Type: 
  Country: None (occurrence: None)
  Receive Date: 20100621
  Receipt Date: 20100621
  Transmission Date: 20101027
  Serious: Yes (Death)
  Sender: FDA-Public Use
  Company Number: None

PATIENT
  Age: 87 Year
  Sex: Male
  Weight: 87.8 kg

DRUGS (12)
  1. AMIODARONE HCL [Suspect]
  2. LEVAQUIN PB [Concomitant]
  3. TYLENOL [Concomitant]
  4. ZOFRAN [Concomitant]
  5. ATROVENT [Concomitant]
  6. VENTOLIN [Concomitant]
  7. XOPENEX SOLN [Concomitant]
  8. FRAGMIN [Concomitant]
  9. SOLU-MEDROL [Concomitant]
  10. ZITHROMAX [Concomitant]
  11. ROCEPHIN [Concomitant]
  12. SINEMET [Concomitant]

REACTIONS (4)
  - APNOEA [None]
  - CARDIOMYOPATHY [None]
  - PULMONARY TOXICITY [None]
  - RESPIRATORY FAILURE [None]
